FAERS Safety Report 19821961 (Version 1)
Quarter: 2021Q3

REPORT INFORMATION
  Report Type: Spontaneous
  Country: US (occurrence: US)
  Receive Date: 20210913
  Receipt Date: 20210913
  Transmission Date: 20211014
  Serious: Yes (Hospitalization)
  Sender: FDA-Public Use
  Company Number: None

PATIENT
  Age: 55 Year
  Sex: Male
  Weight: 65.7 kg

DRUGS (10)
  1. KYPROLIS [Suspect]
     Active Substance: CARFILZOMIB
     Indication: PLASMA CELL MYELOMA
     Dosage: ?          OTHER FREQUENCY:TWICE WEEKLY;?
     Route: 042
     Dates: start: 20210527
  2. POMALYST [Concomitant]
     Active Substance: POMALIDOMIDE
  3. ZOMETA [Concomitant]
     Active Substance: ZOLEDRONIC ACID
  4. LOSARTAN. [Concomitant]
     Active Substance: LOSARTAN
  5. ASPIRIN. [Concomitant]
     Active Substance: ASPIRIN
  6. OMEPRAZOLE. [Concomitant]
     Active Substance: OMEPRAZOLE
  7. DEXAMETHASONE. [Suspect]
     Active Substance: DEXAMETHASONE
     Indication: PLASMA CELL MYELOMA
     Dosage: ?          OTHER FREQUENCY:ONCE WEEKLY;?
     Route: 048
     Dates: start: 20210617
  8. AMLODIPINE [Concomitant]
     Active Substance: AMLODIPINE BESYLATE
  9. CARVEDILOL. [Concomitant]
     Active Substance: CARVEDILOL
  10. IRON [Concomitant]
     Active Substance: IRON

REACTIONS (2)
  - Pneumonia [None]
  - COVID-19 [None]

NARRATIVE: CASE EVENT DATE: 20210829
